FAERS Safety Report 19077917 (Version 1)
Quarter: 2021Q1

REPORT INFORMATION
  Report Type: Spontaneous
  Country: US (occurrence: US)
  Receive Date: 20210331
  Receipt Date: 20210331
  Transmission Date: 20210420
  Serious: Yes (Hospitalization)
  Sender: FDA-Public Use
  Company Number: None

PATIENT
  Age: 64 Year
  Sex: Female

DRUGS (5)
  1. ALBUTEROL AER HFA [Concomitant]
     Dates: start: 20210317
  2. METOPROL TAR TAB 100MG [Concomitant]
     Dates: start: 20210317
  3. MAYZENT [Suspect]
     Active Substance: SIPONIMOD
     Indication: MULTIPLE SCLEROSIS
     Route: 048
     Dates: start: 20191001
  4. ATORVASTATIN TAB 10MG [Concomitant]
     Dates: start: 20210204
  5. DILTIAZEM CAP 120MG ER [Concomitant]
     Dates: start: 20210324

REACTIONS (2)
  - Condition aggravated [None]
  - Intentional dose omission [None]

NARRATIVE: CASE EVENT DATE: 20210330
